FAERS Safety Report 4590818-7 (Version None)
Quarter: 2005Q1

REPORT INFORMATION
  Report Type: 
  Country: None (occurrence: None)
  Receive Date: 20050222
  Receipt Date: 20050222
  Transmission Date: 20050727
  Serious: Yes (Other)
  Sender: FDA-Public Use
  Company Number: None

PATIENT
  Age: 34 Year
  Sex: Female
  Weight: 93.8946 kg

DRUGS (1)
  1. PARAGUARD COPPER T IUD [Suspect]
     Dosage: MODEL T-380A
     Route: 067

REACTIONS (3)
  - DYSMENORRHOEA [None]
  - MENORRHAGIA [None]
  - MENSTRUATION IRREGULAR [None]
